FAERS Safety Report 25439312 (Version 1)
Quarter: 2025Q2

REPORT INFORMATION
  Report Type: Spontaneous
  Country: FR (occurrence: FR)
  Receive Date: 20250616
  Receipt Date: 20250616
  Transmission Date: 20250716
  Serious: Yes (Hospitalization, Other)
  Sender: ORGANON
  Company Number: FR-ORGANON-O2506FRA000684

PATIENT
  Age: 79 Year
  Sex: Female

DRUGS (1)
  1. SINEMET [Suspect]
     Active Substance: CARBIDOPA\LEVODOPA
     Indication: Parkinson^s disease
     Dosage: 4 DOSAGE FORM, TID (3 TAKES OF 4 TABLETS A DAY [4 TABLETS 3 TIMES A DAY])
     Dates: start: 202211

REACTIONS (8)
  - Aortic stenosis [Unknown]
  - Loss of consciousness [Recovered/Resolved]
  - Fall [Unknown]
  - Face injury [Unknown]
  - Decreased appetite [Unknown]
  - Nausea [Unknown]
  - COVID-19 [Unknown]
  - Wrong technique in product usage process [Unknown]

NARRATIVE: CASE EVENT DATE: 20220101
